FAERS Safety Report 4434044-0 (Version None)
Quarter: 2004Q3

REPORT INFORMATION
  Report Type: 
  Country: None (occurrence: None)
  Receive Date: 20040825
  Receipt Date: 20040810
  Transmission Date: 20050211
  Serious: Yes (Hospitalization)
  Sender: FDA-Public Use
  Company Number: K200401236

PATIENT
  Age: 62 Year
  Sex: Female
  Weight: 98.9 kg

DRUGS (6)
  1. EPIPEN [Suspect]
     Indication: ANAPHYLACTIC REACTION
     Dosage: 0.3 MG, SINGLE, INTRAMUSCULAR
     Route: 030
     Dates: start: 20040806, end: 20040806
  2. ZOCOR [Concomitant]
  3. ATACAND [Concomitant]
  4. LABETALOL HCL [Concomitant]
  5. PROZAC (FLUOXETINE HYDROHCLORIDE) [Concomitant]
  6. BABYPRIN (ACETYLSALICYLIC ACID) [Concomitant]

REACTIONS (6)
  - BLISTER [None]
  - ERYTHEMA [None]
  - EYE SWELLING [None]
  - LOSS OF CONSCIOUSNESS [None]
  - RASH PRURITIC [None]
  - ROAD TRAFFIC ACCIDENT [None]
